FAERS Safety Report 20932844 (Version 1)
Quarter: 2022Q2

REPORT INFORMATION
  Report Type: Report from Study
  Country: IT (occurrence: IT)
  Receive Date: 20220608
  Receipt Date: 20220608
  Transmission Date: 20220721
  Serious: Yes (Other)
  Sender: FDA-Public Use
  Company Number: None

PATIENT
  Age: 41 Year
  Sex: Male

DRUGS (2)
  1. XANAX [Suspect]
     Active Substance: ALPRAZOLAM
     Dosage: 40 ML
     Route: 048
     Dates: start: 20220420, end: 20220420
  2. TACHIPIRINA [Suspect]
     Active Substance: ACETAMINOPHEN
     Dosage: 5000 MG
     Route: 048
     Dates: start: 20220420, end: 20220420

REACTIONS (2)
  - Drug abuse [Recovering/Resolving]
  - Psychomotor hyperactivity [Recovering/Resolving]

NARRATIVE: CASE EVENT DATE: 20220420
